FAERS Safety Report 7370005-X (Version None)
Quarter: 2011Q1

REPORT INFORMATION
  Report Type: 
  Country: None (occurrence: None)
  Receive Date: 20110323
  Receipt Date: 20110314
  Transmission Date: 20110831
  Serious: Yes (Other)
  Sender: FDA-Public Use
  Company Number: BR-US-EMD SERONO, INC.-7048382

PATIENT
  Sex: Female

DRUGS (3)
  1. REBIF [Suspect]
     Indication: SECONDARY PROGRESSIVE MULTIPLE SCLEROSIS
     Dates: start: 20061127
  2. VASOPRIL [Concomitant]
  3. BETASERC [Concomitant]

REACTIONS (6)
  - DIZZINESS [None]
  - LABYRINTHITIS [None]
  - NAUSEA [None]
  - MOVEMENT DISORDER [None]
  - GAIT DISTURBANCE [None]
  - FATIGUE [None]
